FAERS Safety Report 7798255-9 (Version None)
Quarter: 2011Q4

REPORT INFORMATION
  Report Type: 
  Country: None (occurrence: None)
  Receive Date: 20111005
  Receipt Date: 20110928
  Transmission Date: 20120403
  Serious: Yes (Hospitalization)
  Sender: FDA-Public Use
  Company Number: US-UCBSA-042532

PATIENT
  Sex: Female

DRUGS (1)
  1. CIMZIA [Suspect]
     Indication: CROHN'S DISEASE
     Route: 058
     Dates: start: 20100927

REACTIONS (3)
  - EXERCISE ELECTROCARDIOGRAM ABNORMAL [None]
  - DYSPNOEA [None]
  - PAIN IN EXTREMITY [None]
